FAERS Safety Report 7988627-1 (Version None)
Quarter: 2011Q4

REPORT INFORMATION
  Report Type: 
  Country: None (occurrence: None)
  Receive Date: 20111218
  Receipt Date: 20111207
  Transmission Date: 20120403
  Serious: Yes (Hospitalization)
  Sender: FDA-Public Use
  Company Number: US-ASTRAZENECA-2011SE46988

PATIENT
  Age: 56 Year
  Sex: Female

DRUGS (3)
  1. SEROQUEL [Suspect]
     Route: 048
     Dates: start: 20070101
  2. SEROQUEL [Suspect]
     Indication: BIPOLAR DISORDER
     Route: 048
  3. TRAZODONE HCL [Concomitant]
     Indication: SLEEP DISORDER

REACTIONS (7)
  - OFF LABEL USE [None]
  - TACHYPHRENIA [None]
  - MANIA [None]
  - DRUG DOSE OMISSION [None]
  - MIDDLE INSOMNIA [None]
  - INITIAL INSOMNIA [None]
  - INSOMNIA [None]
